FAERS Safety Report 12891778 (Version 1)
Quarter: 2016Q4

REPORT INFORMATION
  Report Type: Spontaneous
  Country: US (occurrence: US)
  Receive Date: 20161028
  Receipt Date: 20161028
  Transmission Date: 20170207
  Serious: No
  Sender: FDA-Public Use
  Company Number: US-ZYDUS-010379

PATIENT

DRUGS (1)
  1. LEVOFLOXACIN. [Suspect]
     Active Substance: LEVOFLOXACIN
     Indication: PRODUCT USED FOR UNKNOWN INDICATION

REACTIONS (8)
  - Dysgraphia [Unknown]
  - Tremor [Recovered/Resolved]
  - Dysarthria [Unknown]
  - Thinking abnormal [Unknown]
  - Asthenia [Recovered/Resolved]
  - Illogical thinking [Unknown]
  - Confusional state [Unknown]
  - Fatigue [Recovered/Resolved]
